FAERS Safety Report 11218689 (Version 2)
Quarter: 2015Q3

REPORT INFORMATION
  Report Type: Spontaneous
  Country: JP (occurrence: JP)
  Receive Date: 20150625
  Receipt Date: 20150713
  Transmission Date: 20151125
  Serious: Yes (Hospitalization)
  Sender: FDA-Public Use
  Company Number: JP-SA-2015SA088770

PATIENT
  Age: 81 Year
  Sex: Female
  Weight: 41.2 kg

DRUGS (2)
  1. URSODEOXYCHOLIC ACID [Concomitant]
     Active Substance: URSODIOL
     Indication: BILIARY CIRRHOSIS
     Route: 048
  2. FUROSEMIDE. [Suspect]
     Active Substance: FUROSEMIDE
     Indication: OEDEMA PERIPHERAL
     Dosage: 0.5 T
     Route: 048

REACTIONS (18)
  - Renal impairment [Recovering/Resolving]
  - Intestinal ischaemia [Recovering/Resolving]
  - Decreased appetite [Recovered/Resolved]
  - Body temperature decreased [Recovering/Resolving]
  - Cold sweat [Recovering/Resolving]
  - Blood creatinine increased [Recovering/Resolving]
  - Hypovolaemia [Unknown]
  - Computerised tomogram abnormal [Recovered/Resolved]
  - Gait disturbance [Recovered/Resolved]
  - Abdominal pain [Recovered/Resolved]
  - Nausea [Recovered/Resolved]
  - Dizziness [Recovering/Resolving]
  - Vomiting [Recovered/Resolved]
  - C-reactive protein increased [Unknown]
  - Ascites [Unknown]
  - Blood urea increased [Recovering/Resolving]
  - Inflammation [Unknown]
  - Blood pressure decreased [Recovering/Resolving]
